FAERS Safety Report 4687239-5 (Version None)
Quarter: 2005Q2

REPORT INFORMATION
  Report Type: 
  Country: None (occurrence: None)
  Receive Date: 20050606
  Receipt Date: 20050523
  Transmission Date: 20051028
  Serious: Yes (Hospitalization, Other)
  Sender: FDA-Public Use
  Company Number: 2005078486

PATIENT
  Age: 30 Year
  Sex: Male

DRUGS (6)
  1. ZYRTEC [Suspect]
     Indication: ECZEMA
     Dosage: 10 MG, ORAL
     Route: 048
     Dates: start: 20040921, end: 20040927
  2. BETAMETHASONE [Suspect]
     Indication: ECZEMA
     Dosage: ORAL
     Route: 048
     Dates: start: 20040921, end: 20040924
  3. DEXCHLORPHENIRAMINE MALEATE [Suspect]
     Indication: ECZEMA
     Dosage: ORAL
     Route: 047
     Dates: start: 20040921, end: 20040924
  4. LOXOPROFEN SODIUM (LOXOPROFEN SODIUM) [Suspect]
     Indication: INFLAMMATION
     Dosage: 120 MG, ORAL
     Route: 048
     Dates: start: 20040925, end: 20040927
  5. LOXOPROFEN SODIUM (LOXOPROFEN SODIUM) [Suspect]
     Indication: PYREXIA
     Dosage: 120 MG, ORAL
     Route: 048
     Dates: start: 20040925, end: 20040927
  6. TEPRENONE (TEPRENONE) [Suspect]
     Indication: PROPHYLAXIS AGAINST GASTROINTESTINAL ULCER
     Dosage: 100 MG, ORAL
     Route: 048
     Dates: start: 20040925, end: 20040927

REACTIONS (30)
  - BLISTER [None]
  - CONJUNCTIVAL HYPERAEMIA [None]
  - CYTOMEGALOVIRUS INFECTION [None]
  - DEHYDRATION [None]
  - DISEASE RECURRENCE [None]
  - EOSINOPHIL COUNT INCREASED [None]
  - ERYTHEMA MULTIFORME [None]
  - GENERALISED ERYTHEMA [None]
  - GENERALISED OEDEMA [None]
  - HEPATIC FUNCTION ABNORMAL [None]
  - HUMAN HERPESVIRUS 6 INFECTION [None]
  - HYPERSENSITIVITY [None]
  - INFLAMMATION [None]
  - LYMPHADENOPATHY [None]
  - MOUTH ULCERATION [None]
  - OEDEMA [None]
  - PERITONSILLAR ABSCESS [None]
  - PHARYNGEAL ERYTHEMA [None]
  - PHARYNGEAL OEDEMA [None]
  - PHARYNGOLARYNGEAL PAIN [None]
  - PURPURA [None]
  - PYREXIA [None]
  - RASH PUSTULAR [None]
  - RENAL IMPAIRMENT [None]
  - SCAB [None]
  - TONSILLAR HYPERTROPHY [None]
  - TOXIC SHOCK SYNDROME STAPHYLOCOCCAL [None]
  - ULCER [None]
  - URTICARIA [None]
  - WHITE BLOOD CELL COUNT INCREASED [None]
